FAERS Safety Report 15959534 (Version 1)
Quarter: 2019Q1

REPORT INFORMATION
  Report Type: Spontaneous
  Country: GB (occurrence: GB)
  Receive Date: 20190214
  Receipt Date: 20190214
  Transmission Date: 20190417
  Serious: Yes (Other)
  Sender: FDA-Public Use
  Company Number: GB-ACCORD-106904

PATIENT
  Age: 33 Year
  Sex: Male
  Weight: 68.48 kg

DRUGS (1)
  1. SERTRALINE [Suspect]
     Active Substance: SERTRALINE HYDROCHLORIDE
     Indication: DEPRESSION
     Route: 048
     Dates: start: 201709, end: 201805

REACTIONS (3)
  - Hypoaesthesia [Recovering/Resolving]
  - Withdrawal syndrome [Recovering/Resolving]
  - Insomnia [Recovered/Resolved with Sequelae]
